FAERS Safety Report 24860840 (Version 5)
Quarter: 2025Q3

REPORT INFORMATION
  Report Type: Spontaneous
  Country: US (occurrence: US)
  Receive Date: 20250120
  Receipt Date: 20250816
  Transmission Date: 20251021
  Serious: Yes (Other)
  Sender: ALEXION PHARMACEUTICALS
  Company Number: US-AstraZeneca-CH-00783981AP

PATIENT
  Age: 77 Year
  Sex: Female

DRUGS (1)
  1. SYMBICORT [Suspect]
     Active Substance: BUDESONIDE\FORMOTEROL FUMARATE DIHYDRATE
     Route: 065

REACTIONS (9)
  - Upper limb fracture [Unknown]
  - Asthma [Unknown]
  - Vision blurred [Unknown]
  - Pain in jaw [Unknown]
  - Drug ineffective [Unknown]
  - Wrong technique in device usage process [Unknown]
  - Intentional device use issue [Unknown]
  - Inability to afford medication [Unknown]
  - Device malfunction [Unknown]

NARRATIVE: CASE EVENT DATE: 20250112
